FAERS Safety Report 5967869-0 (Version None)
Quarter: 2008Q4

REPORT INFORMATION
  Report Type: 
  Country: None (occurrence: None)
  Receive Date: 20081126
  Receipt Date: 20081121
  Transmission Date: 20090506
  Serious: Yes (Hospitalization)
  Sender: FDA-Public Use
  Company Number: JP-ASTRAZENECA-2008AP08109

PATIENT
  Age: 61 Year
  Sex: Male
  Weight: 57 kg

DRUGS (11)
  1. IRESSA [Suspect]
     Indication: LUNG ADENOCARCINOMA
     Route: 048
     Dates: start: 20080924, end: 20081006
  2. ZYLORIC [Concomitant]
     Route: 048
     Dates: start: 20060724
  3. LOXONIN [Concomitant]
     Route: 048
     Dates: start: 20080220
  4. CYTOTEC [Concomitant]
     Route: 048
     Dates: start: 20080220
  5. MUCOSTA [Concomitant]
     Route: 048
     Dates: start: 20080220
  6. PROTECADIN [Concomitant]
     Route: 048
     Dates: start: 20080318
  7. OXYCONTIN [Concomitant]
     Route: 048
     Dates: start: 20080813
  8. CELESTONE [Concomitant]
     Indication: ANALGESIA
     Route: 048
     Dates: start: 20080910
  9. CELESTONE [Concomitant]
     Dosage: NUMBER OF SEPARATE DOSAGES UNKNOWN
     Route: 048
     Dates: start: 20080916, end: 20081007
  10. CELESTONE [Concomitant]
     Dosage: NUMBER OF SEPARATE DOSAGES UNKNOWN
     Route: 048
     Dates: start: 20081008
  11. GABAPEN [Concomitant]
     Route: 048
     Dates: start: 20080919

REACTIONS (1)
  - PULMONARY HAEMORRHAGE [None]
